FAERS Safety Report 18015913 (Version 7)
Quarter: 2024Q2

REPORT INFORMATION
  Report Type: Spontaneous
  Country: CA (occurrence: CA)
  Receive Date: 20200713
  Receipt Date: 20240606
  Transmission Date: 20240716
  Serious: Yes (Hospitalization, Other)
  Sender: FDA-Public Use
  Company Number: NVSC2020CA195322

PATIENT
  Age: 81 Year
  Sex: Female

DRUGS (17)
  1. INDACATEROL [Suspect]
     Active Substance: INDACATEROL
     Indication: Product used for unknown indication
     Dosage: 1 DF, QD
     Route: 065
  2. VANCOMYCIN HYDROCHLORIDE [Suspect]
     Active Substance: VANCOMYCIN HYDROCHLORIDE
     Indication: Product used for unknown indication
     Dosage: UNK
     Route: 065
  3. BUDESONIDE [Suspect]
     Active Substance: BUDESONIDE
     Indication: Product used for unknown indication
     Dosage: UNK
     Route: 065
  4. BUDESONIDE [Suspect]
     Active Substance: BUDESONIDE
     Dosage: UNK
     Route: 065
  5. PULMOZYME [Suspect]
     Active Substance: DORNASE ALFA
     Indication: Product used for unknown indication
     Dosage: UNK
     Route: 055
  6. QVAR [Suspect]
     Active Substance: BECLOMETHASONE DIPROPIONATE
     Indication: Product used for unknown indication
     Dosage: 2 DF, QD FORMULATION: INHALATION
     Route: 055
  7. ALBUTEROL SULFATE [Suspect]
     Active Substance: ALBUTEROL SULFATE
     Indication: Asthma
     Dosage: 100 MG
     Route: 065
  8. ALBUTEROL SULFATE [Suspect]
     Active Substance: ALBUTEROL SULFATE
     Dosage: 100 MG
     Route: 065
  9. ALBUTEROL SULFATE [Suspect]
     Active Substance: ALBUTEROL SULFATE
     Dosage: UNK
     Route: 065
  10. VENTOLIN HFA [Suspect]
     Active Substance: ALBUTEROL SULFATE
     Indication: Product used for unknown indication
     Dosage: UNK, METERED-DOSE (AEROSOL)
     Route: 065
  11. ALVESCO [Suspect]
     Active Substance: CICLESONIDE
     Indication: Product used for unknown indication
     Dosage: UNK, AEROSOL, METERED DOSE
     Route: 065
  12. ALVESCO [Suspect]
     Active Substance: CICLESONIDE
     Dosage: UNK, AEROSOL
     Route: 065
  13. AZTREONAM [Suspect]
     Active Substance: AZTREONAM
     Indication: Product used for unknown indication
     Dosage: UNK
     Route: 065
  14. NUCALA [Suspect]
     Active Substance: MEPOLIZUMAB
     Indication: Asthma
     Dosage: UNK
     Route: 065
  15. NUCALA [Suspect]
     Active Substance: MEPOLIZUMAB
     Dosage: 100 MG
     Route: 042
  16. TYLENOL [Suspect]
     Active Substance: ACETAMINOPHEN
     Indication: Product used for unknown indication
     Dosage: UNK
     Route: 065
  17. INDACATEROL MALEATE [Suspect]
     Active Substance: INDACATEROL MALEATE
     Indication: Product used for unknown indication
     Dosage: 1 DOSAGE FORM, QD
     Route: 065

REACTIONS (29)
  - Blood pressure increased [Unknown]
  - Asthma [Unknown]
  - Atelectasis [Unknown]
  - Bacterial disease carrier [Unknown]
  - Drug intolerance [Unknown]
  - Nonspecific reaction [Unknown]
  - Sleep disorder due to a general medical condition [Unknown]
  - Superinfection [Unknown]
  - Bronchial secretion retention [Unknown]
  - Adverse drug reaction [Unknown]
  - General physical health deterioration [Unknown]
  - Wheezing [Unknown]
  - Bronchospasm [Unknown]
  - Dyspnoea [Unknown]
  - Aggression [Unknown]
  - Anxiety [Unknown]
  - Fall [Unknown]
  - Pain [Unknown]
  - Illness [Unknown]
  - Myalgia [Unknown]
  - Rib fracture [Unknown]
  - Scoliosis [Unknown]
  - Eosinophilia [Unknown]
  - Palpitations [Unknown]
  - Atrial fibrillation [Unknown]
  - Heart rate increased [Unknown]
  - Drug hypersensitivity [Unknown]
  - Sinus disorder [Unknown]
  - Therapeutic product effect incomplete [Unknown]
